FAERS Safety Report 7611223-2 (Version None)
Quarter: 2011Q3

REPORT INFORMATION
  Report Type: 
  Country: None (occurrence: None)
  Receive Date: 20110707
  Receipt Date: 20110607
  Transmission Date: 20111222
  Serious: Yes (Hospitalization, Other)
  Sender: FDA-Public Use
  Company Number: JPI-P-012125

PATIENT
  Age: 36 Year
  Sex: Female
  Weight: 108.8633 kg

DRUGS (13)
  1. METHYLPHENIDATE [Concomitant]
  2. IMIPRAMINE [Concomitant]
  3. SIMVASTATIN [Concomitant]
  4. AZELASTINE HCL [Concomitant]
  5. TOPIRAMATE [Concomitant]
  6. LISINOPRIL [Concomitant]
  7. DIVALPROEX SODIUM [Concomitant]
  8. VENLAFAXINE HCL [Concomitant]
  9. XYREM [Suspect]
     Indication: CATAPLEXY
     Dosage: (2 IN 1 D), ORAL; 7.5 GM (3.75 GM, 2 IN 1 D), ORAL; 9 GM (4.5 GM, 2 IN 1 D), ORAL
     Route: 048
     Dates: start: 20050908
  10. XYREM [Suspect]
     Indication: CATAPLEXY
     Dosage: (2 IN 1 D), ORAL; 7.5 GM (3.75 GM, 2 IN 1 D), ORAL; 9 GM (4.5 GM, 2 IN 1 D), ORAL
     Route: 048
     Dates: start: 20101106
  11. XYREM [Suspect]
     Indication: CATAPLEXY
     Dosage: (2 IN 1 D), ORAL; 7.5 GM (3.75 GM, 2 IN 1 D), ORAL; 9 GM (4.5 GM, 2 IN 1 D), ORAL
     Route: 048
     Dates: end: 20101106
  12. DEXTROAMPHETAMINE [Concomitant]
  13. ATENOLOL [Concomitant]

REACTIONS (8)
  - PARANOIA [None]
  - BIPOLAR DISORDER [None]
  - CONSTIPATION [None]
  - DIABETES MELLITUS [None]
  - HEADACHE [None]
  - THERAPEUTIC RESPONSE DECREASED [None]
  - INTRACRANIAL VENOUS SINUS THROMBOSIS [None]
  - CEREBROVASCULAR ACCIDENT [None]
